FAERS Safety Report 6313218-8 (Version None)
Quarter: 2009Q3

REPORT INFORMATION
  Report Type: 
  Country: None (occurrence: None)
  Receive Date: 20090818
  Receipt Date: 20090812
  Transmission Date: 20100115
  Serious: Yes (Hospitalization)
  Sender: FDA-Public Use
  Company Number: US-AVENTIS-200914932US

PATIENT
  Sex: Male
  Weight: 73.63 kg

DRUGS (3)
  1. LANTUS [Suspect]
     Route: 058
     Dates: start: 20090501
  2. OPTICLIK (INSULIN INJECTION PEN) [Suspect]
     Dates: start: 20090501
  3. OPTICLIK GREY [Suspect]
     Dates: start: 20090501

REACTIONS (4)
  - BLOOD GLUCOSE INCREASED [None]
  - MENTAL STATUS CHANGES [None]
  - PYREXIA [None]
  - URINARY TRACT INFECTION [None]
